FAERS Safety Report 21335169 (Version 1)
Quarter: 2022Q3

REPORT INFORMATION
  Report Type: Report from Study
  Country: US (occurrence: US)
  Receive Date: 20220915
  Receipt Date: 20220915
  Transmission Date: 20221026
  Serious: No
  Sender: FDA-Public Use
  Company Number: US-Ipsen Biopharmaceuticals, Inc.-2022-25422

PATIENT
  Age: 36 Year
  Sex: Female

DRUGS (1)
  1. SOMATULINE DEPOT [Suspect]
     Active Substance: LANREOTIDE ACETATE
     Indication: Carcinoid tumour of the stomach
     Route: 058
     Dates: start: 201610

REACTIONS (4)
  - Blood glucose abnormal [Unknown]
  - Heart rate decreased [Unknown]
  - Hypothyroidism [Unknown]
  - Constipation [Unknown]
